FAERS Safety Report 4277032-X (Version None)
Quarter: 2004Q1

REPORT INFORMATION
  Report Type: 
  Country: None (occurrence: None)
  Receive Date: 20040120
  Receipt Date: 20040112
  Transmission Date: 20041129
  Serious: Yes (Other)
  Sender: FDA-Public Use
  Company Number: 200313643EU

PATIENT
  Age: 64 Year
  Sex: Female

DRUGS (5)
  1. CLOBAZAM (CASTILIUM) [Suspect]
     Indication: ANXIETY
     Dosage: 20 MG/DAY; PO
     Route: 048
  2. GLYBURIDE [Suspect]
     Indication: DIABETES MELLITUS
     Dosage: 15 MG/DAY; PO
     Route: 048
  3. PROPRANOLOL [Concomitant]
  4. SPIRONOLACTONE [Concomitant]
  5. GEMFIBROZIL [Concomitant]

REACTIONS (3)
  - DIZZINESS [None]
  - DRUG INTERACTION [None]
  - HEADACHE [None]
